FAERS Safety Report 12631782 (Version 2)
Quarter: 2016Q3

REPORT INFORMATION
  Report Type: Spontaneous
  Country: US (occurrence: US)
  Receive Date: 20160808
  Receipt Date: 20160808
  Transmission Date: 20161109
  Serious: No
  Sender: FDA-Public Use
  Company Number: US-BEH-2016061003

PATIENT
  Sex: Female
  Weight: 81 kg

DRUGS (32)
  1. L-M-X [Concomitant]
  2. PREDNISONE. [Concomitant]
     Active Substance: PREDNISONE
  3. LEVOTHYROXINE. [Concomitant]
     Active Substance: LEVOTHYROXINE
  4. TESTOSTERONE. [Concomitant]
     Active Substance: TESTOSTERONE
  5. VALERIAN ROOT [Concomitant]
     Active Substance: VALERIAN
  6. MALIC ACID [Concomitant]
     Active Substance: MALIC ACID
  7. HIZENTRA [Suspect]
     Active Substance: HUMAN IMMUNOGLOBULIN G
     Indication: IMMUNODEFICIENCY COMMON VARIABLE
     Route: 058
  8. EPIPEN [Concomitant]
     Active Substance: EPINEPHRINE
  9. ULTRAM [Concomitant]
     Active Substance: TRAMADOL HYDROCHLORIDE
  10. ASTEPRO [Concomitant]
     Active Substance: AZELASTINE HYDROCHLORIDE
  11. FOLIC ACID. [Concomitant]
     Active Substance: FOLIC ACID
  12. CHROMIUM [Concomitant]
     Active Substance: CHROMIC CHLORIDE\CHROMIUM
  13. OCUVITE [Concomitant]
     Active Substance: VITAMINS
  14. GARLIC. [Concomitant]
     Active Substance: GARLIC
  15. L-LYSINE [Concomitant]
     Active Substance: LYSINE
  16. ASPIRIN EC [Concomitant]
     Active Substance: ASPIRIN
  17. MELATONIN [Concomitant]
     Active Substance: MELATONIN
  18. GUAIFENESIN. [Concomitant]
     Active Substance: GUAIFENESIN
  19. VITAMIN D3 [Concomitant]
     Active Substance: CHOLECALCIFEROL
  20. FLEXERIL [Concomitant]
     Active Substance: CYCLOBENZAPRINE HYDROCHLORIDE
  21. LASIX [Concomitant]
     Active Substance: FUROSEMIDE
  22. DHEA [Concomitant]
     Active Substance: PRASTERONE
  23. COQ10 [Concomitant]
     Active Substance: UBIDECARENONE
  24. PRILOSEC [Concomitant]
     Active Substance: OMEPRAZOLE MAGNESIUM
  25. DIPHENHYDRAMINE. [Concomitant]
     Active Substance: DIPHENHYDRAMINE
  26. PILOCARPINE. [Concomitant]
     Active Substance: PILOCARPINE
  27. CRANBERRY. [Concomitant]
     Active Substance: CRANBERRY
  28. COMPLETE MULTIVITAMIN [Concomitant]
     Active Substance: VITAMINS
  29. CYCLOBENZAPRINE [Concomitant]
     Active Substance: CYCLOBENZAPRINE
  30. ESTER-C [Concomitant]
     Active Substance: CALCIUM\VITAMINS
  31. HIZENTRA [Suspect]
     Active Substance: HUMAN IMMUNOGLOBULIN G
     Indication: HYPOGAMMAGLOBULINAEMIA
     Route: 058
  32. RESTASIS [Concomitant]
     Active Substance: CYCLOSPORINE

REACTIONS (2)
  - Chest discomfort [Unknown]
  - Nasal congestion [Unknown]
